FAERS Safety Report 21880598 (Version 1)
Quarter: 2023Q1

REPORT INFORMATION
  Report Type: Spontaneous
  Country: FR (occurrence: FR)
  Receive Date: 20230118
  Receipt Date: 20230118
  Transmission Date: 20230417
  Serious: Yes (Hospitalization)
  Sender: FDA-Public Use
  Company Number: None

PATIENT
  Age: 71 Year
  Sex: Male

DRUGS (19)
  1. CEFOTAXIME [Suspect]
     Active Substance: CEFOTAXIME SODIUM
     Indication: Osteitis
     Dosage: 2 GRAM, Q8H
     Route: 042
     Dates: start: 20220927, end: 20221125
  2. VANCOMYCIN [Suspect]
     Active Substance: VANCOMYCIN
     Indication: Osteitis
     Dosage: 1000 MILLIGRAM, QD
     Route: 042
     Dates: start: 20221010, end: 20221125
  3. Dexeryl [Concomitant]
     Indication: Dry skin
     Dosage: 1 DOSAGE FORM
     Route: 003
     Dates: start: 20221117
  4. AMLODIPINE [Concomitant]
     Active Substance: AMLODIPINE BESYLATE
     Indication: Hypertension
     Dosage: 10 MILLIGRAM, QD
     Route: 048
     Dates: start: 20221010
  5. TOUJEO [Concomitant]
     Active Substance: INSULIN GLARGINE
     Indication: Diabetes mellitus
     Dosage: 30 IU QD STRENGTH 300 UNITS/ML SOL IN PRE-FILLED
     Route: 058
     Dates: start: 20221029
  6. POTASSIUM CHLORIDE [Concomitant]
     Active Substance: POTASSIUM CHLORIDE
     Indication: Hypokalaemia
     Dosage: 1.2 GRAM, Q8H
     Route: 048
     Dates: start: 20221119
  7. ELIQUIS [Concomitant]
     Active Substance: APIXABAN
     Indication: Embolism
     Dosage: 5 MILLIGRAM, BID, COATED TABLET
     Route: 048
     Dates: start: 20221010
  8. CANDESARTAN CILEXETIL [Concomitant]
     Active Substance: CANDESARTAN CILEXETIL
     Indication: Hypertension
     Dosage: 16 MILLIGRAM, QD
     Route: 048
     Dates: start: 20221010
  9. ARTISIAL [Concomitant]
     Active Substance: CALCIUM CHLORIDE\MAGNESIUM CHLORIDE\POTASSIUM CHLORIDE\POTASSIUM PHOSPHATE, DIBASIC\POTASSIUM PHOSPH
     Indication: Dry mouth
     Dosage: 4 TIMES PER DAY, SOLN IN PRE-FILLED PEN
     Route: 002
     Dates: start: 20221117
  10. NEBIVOLOL [Concomitant]
     Active Substance: NEBIVOLOL
     Indication: Hypertension
     Dosage: 5 MILLIGRAM, QD
     Route: 048
     Dates: start: 20221010
  11. FIASP [Concomitant]
     Active Substance: INSULIN ASPART
     Indication: Diabetes mellitus
     Dosage: 1 DOSAGE FORM, BID
     Route: 058
     Dates: start: 20221019
  12. POLYETHYLENE GLYCOL 4000 [Concomitant]
     Active Substance: POLYETHYLENE GLYCOL 4000
     Indication: Constipation
     Dosage: 2 DOSAGE FORM, QD
     Route: 048
     Dates: start: 20221020
  13. LANSOPRAZOLE [Concomitant]
     Active Substance: LANSOPRAZOLE
     Indication: Gastrooesophageal reflux disease
     Dosage: 30 MILLIGRAM, QD
     Route: 048
     Dates: start: 20221010
  14. FUROSEMIDE [Concomitant]
     Active Substance: FUROSEMIDE
     Indication: Hypertension
     Dosage: 120 MILLIGRAM, QD
     Route: 048
     Dates: start: 20221010
  15. SPIRONOLACTONE [Concomitant]
     Active Substance: SPIRONOLACTONE
     Indication: Hypertension
     Dosage: 25 MILLIGRAM, QD
     Route: 048
     Dates: start: 20221010
  16. MORPHINE [Concomitant]
     Active Substance: MORPHINE
     Indication: Pain
     Dosage: 10 MILLIGRAM, BID
     Route: 048
     Dates: start: 20221103
  17. MORPHINE [Concomitant]
     Active Substance: MORPHINE
     Dosage: LI
     Route: 048
     Dates: start: 20221119
  18. NALOXEGOL OXALATE [Concomitant]
     Active Substance: NALOXEGOL OXALATE
     Indication: Constipation
     Dosage: 25 MILLIGRAM, QD, COATED TABLET
     Route: 048
     Dates: start: 20221021
  19. ACETAMINOPHEN [Concomitant]
     Active Substance: ACETAMINOPHEN
     Indication: Pain
     Dosage: 1 GRAM, Q8H, CREAM IN TUBE
     Route: 048
     Dates: start: 20221010

REACTIONS (3)
  - Hallucination [Recovered/Resolved]
  - Pyrexia [Recovered/Resolved]
  - Rash macular [Recovered/Resolved]

NARRATIVE: CASE EVENT DATE: 20221122
